FAERS Safety Report 25109781 (Version 1)
Quarter: 2025Q1

REPORT INFORMATION
  Report Type: Spontaneous
  Country: AU (occurrence: AU)
  Receive Date: 20250324
  Receipt Date: 20250324
  Transmission Date: 20250409
  Serious: Yes (Other)
  Sender: AMGEN
  Company Number: AU-AMGEN-AUSSP2025051898

PATIENT
  Age: 67 Year
  Sex: Male

DRUGS (2)
  1. TRASTUZUMAB [Suspect]
     Active Substance: TRASTUZUMAB
     Indication: Metastatic salivary gland cancer
     Route: 065
  2. DOCETAXEL [Concomitant]
     Active Substance: DOCETAXEL
     Route: 065

REACTIONS (4)
  - Kyphosis [Recovered/Resolved]
  - Spinal compression fracture [Recovered/Resolved]
  - Myelopathy [Recovered/Resolved]
  - Off label use [Unknown]
